FAERS Safety Report 9618454 (Version 2)
Quarter: 2013Q4

REPORT INFORMATION
  Report Type: Spontaneous
  Country: US (occurrence: US)
  Receive Date: 20131014
  Receipt Date: 20131025
  Transmission Date: 20140711
  Serious: No
  Sender: FDA-Public Use
  Company Number: US-PFIZER INC-2013292003

PATIENT
  Age: 54 Year
  Sex: Female

DRUGS (4)
  1. PRISTIQ [Suspect]
     Dosage: 50 MG, 1X/DAY
     Route: 048
     Dates: start: 20130830, end: 20130930
  2. XANAX [Concomitant]
     Dosage: 1 MG, AT BEDTIME
     Dates: start: 2008
  3. ZYPREXA [Concomitant]
     Indication: DEPRESSION
     Dosage: 5 MG, AT BEDTIME
     Dates: start: 20130814, end: 20131022
  4. DEPAKOTE [Concomitant]
     Dosage: 15 G, DAILY
     Dates: start: 20130601

REACTIONS (1)
  - Alopecia [Not Recovered/Not Resolved]
